FAERS Safety Report 12634644 (Version 1)
Quarter: 2016Q3

REPORT INFORMATION
  Report Type: Spontaneous
  Country: GB (occurrence: GB)
  Receive Date: 20160808
  Receipt Date: 20160808
  Transmission Date: 20161109
  Serious: Yes (Other)
  Sender: FDA-Public Use
  Company Number: GB-TEVA-681686ACC

PATIENT
  Age: 44 Year
  Sex: Male
  Weight: 84 kg

DRUGS (2)
  1. MONTELUKAST [Suspect]
     Active Substance: MONTELUKAST SODIUM
     Dates: start: 20160720
  2. KETOTIFEN [Concomitant]
     Active Substance: KETOTIFEN
     Dosage: 2 GTT DAILY;
     Dates: start: 20160720

REACTIONS (1)
  - Episcleritis [Recovered/Resolved]

NARRATIVE: CASE EVENT DATE: 20160720
